FAERS Safety Report 19789777 (Version 2)
Quarter: 2022Q3

REPORT INFORMATION
  Report Type: Spontaneous
  Country: US (occurrence: US)
  Receive Date: 20210904
  Receipt Date: 20220923
  Transmission Date: 20221027
  Serious: No
  Sender: FDA-Public Use
  Company Number: US-PURDUE-USA-2021-0271608

PATIENT
  Age: 57 Year

DRUGS (1)
  1. ACETAMINOPHEN\OXYCODONE HYDROCHLORIDE [Suspect]
     Active Substance: ACETAMINOPHEN\OXYCODONE HYDROCHLORIDE
     Indication: Analgesic therapy
     Dosage: 10/325 MG, UNK
     Route: 048

REACTIONS (7)
  - Abdominal discomfort [Unknown]
  - Dehydration [Unknown]
  - Abdominal pain [Unknown]
  - Drug ineffective [Unknown]
  - Pain [Unknown]
  - Diarrhoea [Unknown]
  - Unevaluable event [Unknown]
